FAERS Safety Report 12778132 (Version 1)
Quarter: 2016Q3

REPORT INFORMATION
  Report Type: Spontaneous
  Country: US (occurrence: US)
  Receive Date: 20160925
  Receipt Date: 20160925
  Transmission Date: 20161109
  Serious: Yes (Other)
  Sender: FDA-Public Use
  Company Number: US-BEH-2016073657

PATIENT
  Sex: Female
  Weight: 94.33 kg

DRUGS (33)
  1. HIZENTRA [Suspect]
     Active Substance: HUMAN IMMUNOGLOBULIN G
     Indication: IMMUNODEFICIENCY COMMON VARIABLE
     Dosage: 10 G, QW
     Route: 058
     Dates: start: 20130422
  2. AMOXICILLIN. [Concomitant]
     Active Substance: AMOXICILLIN
  3. CRANBERRY                          /01512301/ [Concomitant]
     Active Substance: CRANBERRY
  4. DYMISTA [Concomitant]
     Active Substance: AZELASTINE HYDROCHLORIDE\FLUTICASONE PROPIONATE
  5. NEURONTIN [Concomitant]
     Active Substance: GABAPENTIN
  6. STOOL SOFTENER [Concomitant]
     Active Substance: DOCUSATE CALCIUM
  7. OXYCODONE [Concomitant]
     Active Substance: OXYCODONE
  8. CORTISONE [Concomitant]
     Active Substance: CORTISONE\HYDROCORTISONE
  9. HYDROCODONE [Concomitant]
     Active Substance: HYDROCODONE
  10. SINGULAIR [Concomitant]
     Active Substance: MONTELUKAST SODIUM
  11. DULERA [Concomitant]
     Active Substance: FORMOTEROL FUMARATE DIHYDRATE\MOMETASONE FUROATE
  12. XOPENEX [Concomitant]
     Active Substance: LEVALBUTEROL HYDROCHLORIDE
  13. DAILY MULTIVITAMIN [Concomitant]
     Active Substance: VITAMINS
  14. LEVAQUIN [Concomitant]
     Active Substance: LEVOFLOXACIN
  15. HYDROCODONE BITARTRATE AND ACETAMINOPHEN [Concomitant]
     Active Substance: ACETAMINOPHEN\HYDROCODONE BITARTRATE
  16. MOBIC [Concomitant]
     Active Substance: MELOXICAM
  17. VANCOMYCIN [Concomitant]
     Active Substance: VANCOMYCIN
  18. PREDNISONE. [Concomitant]
     Active Substance: PREDNISONE
  19. PRAVASTATIN. [Concomitant]
     Active Substance: PRAVASTATIN
  20. DIAZEPAM. [Concomitant]
     Active Substance: DIAZEPAM
  21. POTASSIUM [Concomitant]
     Active Substance: POTASSIUM
  22. PROMETHAZINE [Concomitant]
     Active Substance: PROMETHAZINE\PROMETHAZINE HYDROCHLORIDE
  23. LOTREL [Concomitant]
     Active Substance: AMLODIPINE BESYLATE\BENAZEPRIL HYDROCHLORIDE
  24. TEKTURNA [Concomitant]
     Active Substance: ALISKIREN HEMIFUMARATE
  25. VENTOLIN [Concomitant]
     Active Substance: ALBUTEROL SULFATE
  26. COENZYME Q10 [Concomitant]
     Active Substance: UBIDECARENONE
  27. PENICILLIN                         /00000901/ [Concomitant]
     Active Substance: PENICILLIN G
  28. ZYRTEC [Concomitant]
     Active Substance: CETIRIZINE HYDROCHLORIDE
  29. HYDROCHLOROTHIAZIDE. [Concomitant]
     Active Substance: HYDROCHLOROTHIAZIDE
  30. NEXIUM [Concomitant]
     Active Substance: ESOMEPRAZOLE MAGNESIUM
  31. ESTRACE [Concomitant]
     Active Substance: ESTRADIOL
  32. VITAMIN E                          /00110501/ [Concomitant]
     Active Substance: TOCOPHEROL
  33. ALLEGRA [Concomitant]
     Active Substance: FEXOFENADINE HYDROCHLORIDE

REACTIONS (2)
  - Abscess [Unknown]
  - Furuncle [Unknown]
